FAERS Safety Report 7409394-6 (Version None)
Quarter: 2011Q2

REPORT INFORMATION
  Report Type: 
  Country: None (occurrence: None)
  Receive Date: 20110412
  Receipt Date: 20110218
  Transmission Date: 20111010
  Serious: Yes (Death, Hospitalization, Other)
  Sender: FDA-Public Use
  Company Number: US-BAYER-201010318NA

PATIENT
  Age: 66 Year
  Weight: 74.83 kg

DRUGS (3)
  1. HEPARIN [Concomitant]
     Dosage: UNK
     Route: 042
     Dates: start: 20010123
  2. TRASYLOL [Suspect]
     Indication: CORONARY ARTERY BYPASS
     Dosage: 200ML BOLUS THEN 50ML/HR FOR 2 HRS
     Route: 042
     Dates: start: 20010123, end: 20010123
  3. PROTAMINE SULFATE [Concomitant]
     Dosage: UNK
     Route: 042
     Dates: start: 20010123

REACTIONS (12)
  - INJURY [None]
  - DEATH [None]
  - FEAR [None]
  - ANHEDONIA [None]
  - EMOTIONAL DISTRESS [None]
  - STRESS [None]
  - PAIN [None]
  - RENAL INJURY [None]
  - RENAL IMPAIRMENT [None]
  - UNEVALUABLE EVENT [None]
  - RENAL FAILURE [None]
  - ANXIETY [None]
